FAERS Safety Report 9216987 (Version 1)
Quarter: 2013Q2

REPORT INFORMATION
  Report Type: Spontaneous
  Country: US (occurrence: None)
  Receive Date: 20130405
  Receipt Date: 20130405
  Transmission Date: 20140414
  Serious: No
  Sender: FDA-Public Use
  Company Number: None

PATIENT
  Age: 46 Year
  Sex: Female
  Weight: 143.3 kg

DRUGS (1)
  1. TUBERCULIN, PURIFIED PROTEIN DERIVATIVE [Suspect]
     Dates: start: 20120808, end: 20120808

REACTIONS (2)
  - Anaphylactic reaction [None]
  - Rash [None]
